FAERS Safety Report 15155234 (Version 2)
Quarter: 2018Q3

REPORT INFORMATION
  Report Type: Spontaneous
  Country: PT (occurrence: PT)
  Receive Date: 20180717
  Receipt Date: 20180723
  Transmission Date: 20181010
  Serious: Yes (Hospitalization)
  Sender: FDA-Public Use
  Company Number: PT-SA-2018SA181851

PATIENT
  Age: 27 Year
  Sex: Female
  Weight: 56 kg

DRUGS (5)
  1. LANTUS [Suspect]
     Active Substance: INSULIN GLARGINE
     Indication: TYPE 1 DIABETES MELLITUS
     Dosage: 100 MG, QD
     Route: 065
     Dates: start: 2009
  2. NOVORAPID [Suspect]
     Active Substance: INSULIN ASPART
     Dosage: 100 U, QD
     Route: 058
     Dates: start: 2009
  3. FOLIFER [FERROUS FUMARATE;FOLIC ACID] [Concomitant]
     Indication: PROPHYLAXIS
     Dosage: UNK
     Route: 065
     Dates: start: 2017, end: 20180308
  4. NOVORAPID [Suspect]
     Active Substance: INSULIN ASPART
     Indication: PRODUCT USED FOR UNKNOWN INDICATION
     Dosage: 100 U, QD
     Route: 058
     Dates: start: 2005
  5. ALDOMET [METHYLDOPA] [Concomitant]
     Indication: HYPERTENSION
     Dosage: UNK
     Dates: start: 20180205

REACTIONS (3)
  - HELLP syndrome [Unknown]
  - Exposure during pregnancy [Unknown]
  - Hypertension [Unknown]

NARRATIVE: CASE EVENT DATE: 20170824
